FAERS Safety Report 4822371-4 (Version None)
Quarter: 2005Q4

REPORT INFORMATION
  Report Type: 
  Country: None (occurrence: None)
  Receive Date: 20051108
  Receipt Date: 20051104
  Transmission Date: 20060501
  Serious: Yes (Death)
  Sender: FDA-Public Use
  Company Number: US-BOEHRINGER INGELHEIM PHARMACEUTICALS, INC.-2005-BP-19258BP

PATIENT
  Sex: Female

DRUGS (2)
  1. ATROVENT [Suspect]
     Route: 055
  2. ALBUTEROL [Concomitant]

REACTIONS (1)
  - ASTHMA [None]
